FAERS Safety Report 10224215 (Version 2)
Quarter: 2014Q2

REPORT INFORMATION
  Report Type: Spontaneous
  Country: US (occurrence: US)
  Receive Date: 20140609
  Receipt Date: 20140609
  Transmission Date: 20141212
  Serious: No
  Sender: FDA-Public Use
  Company Number: US-PFIZER INC-2014016860

PATIENT
  Age: 83 Year
  Sex: Female
  Weight: 69.39 kg

DRUGS (4)
  1. GABAPENTIN [Suspect]
     Indication: DIABETIC FOOT
     Dosage: 100 MG, 2X/DAY
     Dates: start: 2013, end: 2013
  2. GABAPENTIN [Suspect]
     Indication: BURNING SENSATION
     Dosage: 100 MG, 3X/DAY
     Dates: start: 2013
  3. GABAPENTIN [Suspect]
     Indication: PERIPHERAL SWELLING
  4. METFORMIN [Concomitant]
     Indication: DIABETES MELLITUS
     Dosage: 500 MG, 2X/DAY

REACTIONS (2)
  - Drug ineffective for unapproved indication [Unknown]
  - Somnolence [Unknown]
